FAERS Safety Report 9234621 (Version 2)
Quarter: 2013Q2

REPORT INFORMATION
  Report Type: Spontaneous
  Country: US (occurrence: US)
  Receive Date: 20130416
  Receipt Date: 20130416
  Transmission Date: 20140414
  Serious: No
  Sender: FDA-Public Use
  Company Number: US-MYLANLABS-2013S1006349

PATIENT
  Age: 82 Year
  Sex: Female

DRUGS (1)
  1. VALSARTAN AND HYDROCHLOROTHIAZIDE TABLETS [Suspect]
     Indication: BLOOD PRESSURE
     Route: 048
     Dates: start: 2013, end: 2013

REACTIONS (2)
  - Choking sensation [Recovered/Resolved]
  - Abdominal discomfort [Recovered/Resolved]
